FAERS Safety Report 9445259 (Version 2)
Quarter: 2013Q4

REPORT INFORMATION
  Report Type: Report from Study
  Country: US (occurrence: US)
  Receive Date: 20130807
  Receipt Date: 20131017
  Transmission Date: 20140711
  Serious: Yes (Death, Life-Threatening, Hospitalization, Other)
  Sender: FDA-Public Use
  Company Number: US-ACTELION-A-US2013-79871

PATIENT
  Age: 46 Year
  Sex: Female

DRUGS (3)
  1. VELETRI [Suspect]
     Indication: PULMONARY ARTERIAL HYPERTENSION
     Dosage: 10 NG/KG, PER MIN
     Route: 042
     Dates: start: 20111031
  2. SILDENAFIL [Concomitant]
     Indication: PULMONARY ARTERIAL HYPERTENSION
  3. LASIX [Concomitant]

REACTIONS (6)
  - Pulmonary arterial hypertension [Fatal]
  - Condition aggravated [Fatal]
  - Hypotension [Fatal]
  - Right ventricular failure [Fatal]
  - Fluid retention [Fatal]
  - Dyspnoea [Unknown]
